FAERS Safety Report 8464911-2 (Version None)
Quarter: 2012Q2

REPORT INFORMATION
  Report Type: 
  Country: None (occurrence: None)
  Receive Date: 20120626
  Receipt Date: 20120619
  Transmission Date: 20120825
  Serious: Yes (Death)
  Sender: FDA-Public Use
  Company Number: US-JNJFOC-20120604208

PATIENT

DRUGS (17)
  1. DEXAMETHASONE [Suspect]
     Indication: BURKITT'S LYMPHOMA
     Route: 065
  2. VINCRISTINE [Suspect]
     Indication: BURKITT'S LYMPHOMA
     Route: 065
  3. CYCLOPHOSPHAMIDE [Suspect]
     Indication: BURKITT'S LYMPHOMA
     Route: 065
  4. METHOTREXATE [Suspect]
     Indication: ACUTE LYMPHOCYTIC LEUKAEMIA
     Route: 037
  5. CYTARABINE [Suspect]
     Indication: ACUTE LYMPHOCYTIC LEUKAEMIA
     Route: 065
  6. MONOCLONAL ANTIBODIES [Suspect]
     Indication: ACUTE LYMPHOCYTIC LEUKAEMIA
     Dosage: STANDARD DOSE
     Route: 065
  7. MONOCLONAL ANTIBODIES [Suspect]
     Indication: BURKITT'S LYMPHOMA
     Dosage: STANDARD DOSE
     Route: 065
  8. DOXORUBICIN HCL [Suspect]
     Indication: ACUTE LYMPHOCYTIC LEUKAEMIA
     Route: 042
  9. METHOTREXATE [Suspect]
     Indication: BURKITT'S LYMPHOMA
     Route: 037
  10. CYTARABINE [Suspect]
     Indication: BURKITT'S LYMPHOMA
     Route: 065
  11. ALL OTHER THERAPEUTIC DRUGS [Concomitant]
     Indication: PROPHYLAXIS
     Route: 065
  12. DOXORUBICIN HCL [Suspect]
     Indication: BURKITT'S LYMPHOMA
     Route: 042
  13. CYCLOPHOSPHAMIDE [Suspect]
     Indication: ACUTE LYMPHOCYTIC LEUKAEMIA
     Route: 065
  14. VINCRISTINE [Suspect]
     Indication: ACUTE LYMPHOCYTIC LEUKAEMIA
     Route: 065
  15. DEXAMETHASONE [Suspect]
     Indication: ACUTE LYMPHOCYTIC LEUKAEMIA
     Route: 065
  16. RITUXIMAB [Suspect]
     Indication: BURKITT'S LYMPHOMA
     Dosage: DAYS 1, 11 OF HYPER-CVAD AND DAYS 1, 8 OF MTX-CYTARABINE COURSES
     Route: 065
  17. RITUXIMAB [Suspect]
     Indication: ACUTE LYMPHOCYTIC LEUKAEMIA
     Dosage: DAYS 1, 11 OF HYPER-CVAD AND DAYS 1, 8 OF MTX-CYTARABINE COURSES
     Route: 065

REACTIONS (1)
  - DEATH [None]
